FAERS Safety Report 7301131-9 (Version None)
Quarter: 2011Q1

REPORT INFORMATION
  Report Type: 
  Country: None (occurrence: None)
  Receive Date: 20110218
  Receipt Date: 20101222
  Transmission Date: 20110831
  Serious: Yes (Hospitalization, Other)
  Sender: FDA-Public Use
  Company Number: US-BAYER-201023193NA

PATIENT
  Sex: Female
  Weight: 74.83 kg

DRUGS (12)
  1. PHENAZOPYRIDINE HCL TAB [Concomitant]
     Dosage: 02 MG, UNK
  2. YAZ [Suspect]
     Indication: CONTRACEPTION
     Route: 048
     Dates: start: 20050101
  3. VALIUM [Concomitant]
     Dosage: 10 MG, HS
     Route: 048
  4. SYNTHROID [Concomitant]
     Dosage: DAILY DOSE 25 MCG/24HR
  5. ATIVAN [Concomitant]
     Dosage: 2 MG, UNK
     Route: 048
  6. DEPAKOTE [Concomitant]
     Dosage: 250 MG, UNK
  7. YAZ [Suspect]
     Indication: PREMENSTRUAL SYNDROME
  8. ACETAMINOPHEN [Concomitant]
     Dosage: 650 MG, Q4HR
     Route: 048
  9. GEODON [Concomitant]
     Dosage: 40 MG, BID
  10. LEXAPRO [Concomitant]
     Dosage: DAILY DOSE 20 MG
  11. NITROFURANTOIN [Concomitant]
     Dosage: 100 MG, BID
  12. CYTOMEL [Concomitant]
     Dosage: 5 MCG/24HR, UNK

REACTIONS (4)
  - HEMIPARESIS [None]
  - ARTERY DISSECTION [None]
  - CEREBROVASCULAR ACCIDENT [None]
  - APHASIA [None]
